FAERS Safety Report 4853175-4 (Version None)
Quarter: 2005Q4

REPORT INFORMATION
  Report Type: 
  Country: None (occurrence: None)
  Receive Date: 20051214
  Receipt Date: 20051206
  Transmission Date: 20060501
  Serious: Yes (Other)
  Sender: FDA-Public Use
  Company Number: US-ROCHE-427818

PATIENT
  Age: 30 Year
  Sex: Male

DRUGS (2)
  1. PEGASYS [Suspect]
     Dosage: ROUTE = INJECTION
     Route: 050
     Dates: end: 20050515
  2. COPEGUS [Suspect]
     Route: 048
     Dates: end: 20050515

REACTIONS (2)
  - INFERTILITY [None]
  - INFERTILITY MALE [None]
